FAERS Safety Report 11917941 (Version 1)
Quarter: 2016Q1

REPORT INFORMATION
  Report Type: Spontaneous
  Country: CA (occurrence: CA)
  Receive Date: 20160114
  Receipt Date: 20160114
  Transmission Date: 20160526
  Serious: Yes (Other)
  Sender: FDA-Public Use
  Company Number: CA-BAYER-2012-125335

PATIENT
  Age: 85 Year
  Sex: Female

DRUGS (6)
  1. ADALAT CC [Suspect]
     Active Substance: NIFEDIPINE
     Indication: HYPERTENSION
     Dosage: 30 MG, BID
  2. ADALAT CC [Suspect]
     Active Substance: NIFEDIPINE
     Indication: HYPERTENSION
     Dosage: 60 MG, BID
  3. ADALAT CC [Suspect]
     Active Substance: NIFEDIPINE
     Indication: HYPERTENSION
     Dosage: 30 MG, BID
  4. ASPIRIN 81MG [Suspect]
     Active Substance: ASPIRIN
     Dosage: 81 MG, QD
  5. RAMIPRIL. [Suspect]
     Active Substance: RAMIPRIL
  6. CENTRUM [Concomitant]
     Active Substance: VITAMINS
     Dosage: UNK

REACTIONS (6)
  - Blood pressure increased [None]
  - Dysstasia [Recovering/Resolving]
  - Cough [None]
  - Vertigo [Recovering/Resolving]
  - Dizziness [None]
  - Hypertension [Recovering/Resolving]

NARRATIVE: CASE EVENT DATE: 20160105
